FAERS Safety Report 8952492 (Version 1)
Quarter: 2012Q4

REPORT INFORMATION
  Report Type: 
  Country: US (occurrence: US)
  Receive Date: 20121205
  Receipt Date: 20121205
  Transmission Date: 20130627
  Serious: Yes (Hospitalization)
  Sender: FDA-Public Use
  Company Number: US-BAYER-2012-124564

PATIENT
  Age: 19 Year
  Sex: Female
  Weight: 57 kg

DRUGS (21)
  1. YAZ [Suspect]
     Indication: ACNE
  2. GIANVI [Suspect]
  3. CENTRUM [Concomitant]
  4. AMOXICILLIN [Concomitant]
  5. TYLENOL [Concomitant]
     Indication: HEAD COLD
  6. CEPHALEXIN [Concomitant]
  7. AZITHROMYCIN [Concomitant]
  8. PREDNISONE [Concomitant]
  9. UNASYN [Concomitant]
  10. FLAGYL [Concomitant]
  11. VANCOMYCIN [Concomitant]
  12. ERTAPENEM [Concomitant]
  13. DILAUDID PCA [Concomitant]
  14. VALIUM [Concomitant]
  15. DOCUSATE [Concomitant]
  16. FAMOTIDINE [Concomitant]
  17. POLYETHYLENE GLYCOL [Concomitant]
  18. DIAZEPAM [Concomitant]
  19. OXYCODONE [Concomitant]
  20. ACETAMINOPHEN [Concomitant]
  21. IBUPROFEN [Concomitant]

REACTIONS (1)
  - Jugular vein thrombosis [None]
